FAERS Safety Report 4494377-9 (Version None)
Quarter: 2004Q4

REPORT INFORMATION
  Report Type: 
  Country: None (occurrence: None)
  Receive Date: 20041105
  Receipt Date: 20040909
  Transmission Date: 20050328
  Serious: Yes (Other)
  Sender: FDA-Public Use
  Company Number: PHBS2004JP12020

PATIENT
  Age: 56 Year
  Sex: Female

DRUGS (5)
  1. TEGRETOL [Suspect]
     Indication: EPILEPSY
     Dosage: 400 MG/DAY
     Route: 048
     Dates: end: 20040825
  2. DEPAS [Concomitant]
     Dosage: 2 MG/DAY
     Route: 048
  3. AKINETON [Concomitant]
     Dosage: 1 MG/DAY
     Route: 048
     Dates: start: 20001024
  4. NEUQUINON [Concomitant]
     Dosage: 20 MG/DAY
     Route: 048
     Dates: end: 20041018
  5. YODEL [Concomitant]
     Dosage: 1 DF
     Route: 048

REACTIONS (3)
  - BRADYCARDIA [None]
  - DEPRESSED LEVEL OF CONSCIOUSNESS [None]
  - DIZZINESS [None]
